FAERS Safety Report 6208522-8 (Version None)
Quarter: 2009Q2

REPORT INFORMATION
  Report Type: 
  Country: None (occurrence: None)
  Receive Date: 20090529
  Receipt Date: 20090527
  Transmission Date: 20091009
  Serious: Yes (Hospitalization, Disabling)
  Sender: FDA-Public Use
  Company Number: JP-ASTRAZENECA-2009AP03330

PATIENT
  Age: 72 Year
  Sex: Female
  Weight: 52 kg

DRUGS (3)
  1. DIPRIVAN [Suspect]
     Indication: INDUCTION AND MAINTENANCE OF ANAESTHESIA
     Dosage: DOSE UNKNOWN
     Route: 042
     Dates: start: 20090417, end: 20090417
  2. ATARAX [Concomitant]
     Indication: PREOPERATIVE CARE
     Route: 041
     Dates: start: 20090417, end: 20090417
  3. FENTANYL-100 [Concomitant]
     Indication: MAINTENANCE OF ANAESTHESIA
     Route: 041
     Dates: start: 20090417, end: 20090417

REACTIONS (1)
  - ALTERED STATE OF CONSCIOUSNESS [None]
